FAERS Safety Report 19228476 (Version 1)
Quarter: 2021Q2

REPORT INFORMATION
  Report Type: Spontaneous
  Country: US (occurrence: US)
  Receive Date: 20210507
  Receipt Date: 20210507
  Transmission Date: 20210717
  Serious: No
  Sender: FDA-Public Use
  Company Number: US-BRISTOL-MYERS SQUIBB COMPANY-BMS-2021-041628

PATIENT
  Age: 75 Year
  Sex: Male
  Weight: 113.37 kg

DRUGS (1)
  1. ELIQUIS [Suspect]
     Active Substance: APIXABAN
     Indication: CEREBROVASCULAR ACCIDENT PROPHYLAXIS
     Dosage: 5 MILLIGRAM, QD
     Route: 048
     Dates: start: 2021

REACTIONS (5)
  - Muscular weakness [Unknown]
  - Dizziness [Unknown]
  - Off label use [Unknown]
  - Fatigue [Unknown]
  - Gait disturbance [Unknown]
